FAERS Safety Report 17144402 (Version 1)
Quarter: 2019Q4

REPORT INFORMATION
  Report Type: Spontaneous
  Country: SE (occurrence: SE)
  Receive Date: 20191212
  Receipt Date: 20191212
  Transmission Date: 20200122
  Serious: Yes (Hospitalization)
  Sender: FDA-Public Use
  Company Number: SE-TEVA-2019-SE-1148966

PATIENT
  Age: 27 Year
  Sex: Male

DRUGS (3)
  1. VOXRA [Suspect]
     Active Substance: BUPROPION HYDROCHLORIDE
     Dosage: TAKEN 3 G
     Route: 048
     Dates: start: 20181210, end: 20181210
  2. LERGIGAN (PROMETHAZINE HYDROCHLORIDE) [Suspect]
     Active Substance: PROMETHAZINE HYDROCHLORIDE
     Route: 048
     Dates: start: 20181210, end: 20181210
  3. MIRTAZAPINE. [Suspect]
     Active Substance: MIRTAZAPINE
     Route: 048
     Dates: start: 20181210, end: 20181210

REACTIONS (8)
  - Intentional overdose [Unknown]
  - Hypertension [Unknown]
  - Agitation [Unknown]
  - Akathisia [Unknown]
  - Intentional self-injury [Unknown]
  - Tachycardia [Unknown]
  - Musculoskeletal stiffness [Unknown]
  - Mydriasis [Unknown]

NARRATIVE: CASE EVENT DATE: 20181210
